FAERS Safety Report 16712694 (Version 2)
Quarter: 2020Q4

REPORT INFORMATION
  Report Type: Spontaneous
  Country: FJ (occurrence: FJ)
  Receive Date: 20190816
  Receipt Date: 20201205
  Transmission Date: 20210113
  Serious: Yes (Death)
  Sender: FDA-Public Use
  Company Number: PHHY2019FJ190253

PATIENT
  Sex: Male

DRUGS (1)
  1. TASIGNA [Suspect]
     Active Substance: NILOTINIB
     Indication: CHRONIC MYELOID LEUKAEMIA
     Dosage: 400 MG, BID
     Route: 065

REACTIONS (2)
  - Thrombocytopenia [Fatal]
  - Gastrointestinal haemorrhage [Fatal]
